FAERS Safety Report 6401554-6 (Version None)
Quarter: 2009Q4

REPORT INFORMATION
  Report Type: 
  Country: None (occurrence: None)
  Receive Date: 20091015
  Receipt Date: 20091006
  Transmission Date: 20100525
  Serious: Yes (Other)
  Sender: FDA-Public Use
  Company Number: BR-AVENTIS-200921154GDDC

PATIENT
  Age: 80 Year
  Sex: Male
  Weight: 79 kg

DRUGS (4)
  1. LANTUS [Suspect]
     Dosage: DOSE: ACCORDING TO GLYCEMIA (AVERAGE 40 IU)
     Route: 058
     Dates: end: 20090928
  2. LANTUS [Suspect]
     Dosage: DOSE: ACCORDING TO GLYCEMIA (AVERAGE 40 IU)
     Route: 058
     Dates: start: 20090929, end: 20090929
  3. LANTUS [Suspect]
     Dosage: DOSE: ACCORDING TO GLYCEMIA (AVERAGE 40 IU)
     Route: 058
     Dates: start: 20090930
  4. INSULINS AND ANALOGUES,FAST-ACTING [Concomitant]
     Route: 058

REACTIONS (4)
  - BLOOD GLUCOSE INCREASED [None]
  - CHEST PAIN [None]
  - DRUG INEFFECTIVE [None]
  - PRODUCT QUALITY ISSUE [None]
